FAERS Safety Report 20705622 (Version 2)
Quarter: 2024Q1

REPORT INFORMATION
  Report Type: Spontaneous
  Country: GR (occurrence: GR)
  Receive Date: 20220413
  Receipt Date: 20240105
  Transmission Date: 20240410
  Serious: Yes (Life-Threatening, Other)
  Sender: FDA-Public Use
  Company Number: None

PATIENT
  Age: 48 Year
  Sex: Female
  Weight: 125 kg

DRUGS (2)
  1. CLARITHROMYCIN [Suspect]
     Active Substance: CLARITHROMYCIN
     Indication: Product used for unknown indication
     Dosage: UNK
     Route: 042
  2. AMOXIL [Concomitant]
     Active Substance: AMOXICILLIN
     Indication: Product used for unknown indication
     Dosage: UNK
     Route: 042

REACTIONS (4)
  - Anaphylactic shock [Recovered/Resolved]
  - Cough [Unknown]
  - Loss of consciousness [Recovered/Resolved]
  - Somnolence [Recovered/Resolved]
